FAERS Safety Report 6825918-1 (Version None)
Quarter: 2010Q3

REPORT INFORMATION
  Report Type: 
  Country: None (occurrence: None)
  Receive Date: 20100709
  Receipt Date: 20100628
  Transmission Date: 20110219
  Serious: Yes (Hospitalization, Other)
  Sender: FDA-Public Use
  Company Number: US-BAYER-200924060NA

PATIENT
  Age: 26 Year
  Sex: Female
  Weight: 100 kg

DRUGS (9)
  1. YAZ [Suspect]
     Indication: CONTRACEPTION
     Dosage: 3.0/0.03. PHARMACY RECORDS: 17-SEP-2007
     Route: 048
     Dates: start: 20080401, end: 20080621
  2. YASMIN [Suspect]
     Indication: CONTRACEPTION
     Dosage: AS USED: I DF
     Route: 048
  3. PLAQUENIL [Concomitant]
     Indication: SYSTEMIC LUPUS ERYTHEMATOSUS
     Dosage: TOTAL DAILY DOSE: 400 MG  UNIT DOSE: 200 MG
     Route: 065
     Dates: start: 20020101, end: 20090101
  4. PREDNISONE [Concomitant]
     Indication: SYSTEMIC LUPUS ERYTHEMATOSUS
     Route: 065
     Dates: start: 20020101, end: 20090101
  5. METHOTHEXATE [Concomitant]
     Indication: SYSTEMIC LUPUS ERYTHEMATOSUS
     Route: 065
     Dates: start: 20080101, end: 20090101
  6. INDOCIN [Concomitant]
     Route: 065
  7. OXYCODONE HCL [Concomitant]
     Dosage: TOTAL DAILY DOSE: 30 MG  UNIT DOSE: 7.5 MG
     Route: 065
  8. HYDROXYCHLOROQUINE [Concomitant]
     Dosage: UNIT DOSE: 200 MG
     Route: 065
  9. JOLIVETTE [Concomitant]
     Dosage: PHARMACY RECORDS: REFILLED ON 27-MAR-2009

REACTIONS (4)
  - DEEP VEIN THROMBOSIS [None]
  - INTERMITTENT CLAUDICATION [None]
  - OEDEMA PERIPHERAL [None]
  - PAIN IN EXTREMITY [None]
